FAERS Safety Report 23843560 (Version 1)
Quarter: 2024Q2

REPORT INFORMATION
  Report Type: Spontaneous
  Country: CN (occurrence: CN)
  Receive Date: 20240510
  Receipt Date: 20240510
  Transmission Date: 20240716
  Serious: Yes (Hospitalization)
  Sender: FDA-Public Use
  Company Number: CN-BoehringerIngelheim-2024-BI-026289

PATIENT
  Age: 73 Year
  Sex: Female
  Weight: 70.0 kg

DRUGS (1)
  1. COMBIVENT [Suspect]
     Active Substance: ALBUTEROL SULFATE\IPRATROPIUM BROMIDE
     Indication: Bronchitis
     Dosage: 1 DOSAGE FORM
     Route: 055
     Dates: start: 20240430, end: 20240501

REACTIONS (3)
  - Palpitations [Recovering/Resolving]
  - Chest pain [Recovering/Resolving]
  - Angina pectoris [Recovering/Resolving]

NARRATIVE: CASE EVENT DATE: 20240501
